FAERS Safety Report 7955048-7 (Version None)
Quarter: 2011Q4

REPORT INFORMATION
  Report Type: 
  Country: None (occurrence: None)
  Receive Date: 20111202
  Receipt Date: 20111123
  Transmission Date: 20120403
  Serious: Yes (Other)
  Sender: FDA-Public Use
  Company Number: PHHY2011NL104045

PATIENT
  Sex: Female
  Weight: 58 kg

DRUGS (9)
  1. LANOXIN [Concomitant]
     Dates: start: 20091007
  2. COLCHICINE [Concomitant]
     Dates: start: 20091007
  3. VENTOLIN [Concomitant]
     Dosage: 2 DF, TID
     Dates: start: 20091029
  4. CAPTOPRIL [Concomitant]
     Dosage: 1 DF, BID
     Dates: start: 20101223
  5. MONO-CEDOCARD [Concomitant]
     Dosage: 1 DF, QD
     Dates: start: 20110930
  6. CIPROFLOXACIN [Concomitant]
     Dosage: 1 DF, BID
     Dates: start: 20111013
  7. AZITHROMYCIN [Suspect]
     Indication: RESPIRATORY TRACT INFECTION
     Dosage: 300 MG, UNK
     Route: 048
     Dates: start: 20111020, end: 20111024
  8. ATROVENT [Concomitant]
     Dosage: 3 DF, TID
     Dates: start: 20100118
  9. ACENOCOUMAROL [Interacting]
     Indication: ATRIAL FIBRILLATION
     Dates: start: 20091007

REACTIONS (2)
  - INTERNATIONAL NORMALISED RATIO INCREASED [None]
  - POTENTIATING DRUG INTERACTION [None]
